FAERS Safety Report 25713527 (Version 1)
Quarter: 2025Q3

REPORT INFORMATION
  Report Type: Spontaneous
  Country: US (occurrence: US)
  Receive Date: 20250822
  Receipt Date: 20250822
  Transmission Date: 20251020
  Serious: No
  Sender: BIOGEN
  Company Number: US-BIOGEN-2025BI01321223

PATIENT
  Sex: Male

DRUGS (4)
  1. TECFIDERA [Suspect]
     Active Substance: DIMETHYL FUMARATE
     Indication: Multiple sclerosis
     Route: 050
  2. GABAPENTIN [Concomitant]
     Active Substance: GABAPENTIN
     Dosage: FOR 30 DAYS
     Route: 050
     Dates: start: 20240802
  3. KEPPRA [Concomitant]
     Active Substance: LEVETIRACETAM
     Dosage: FOR 30 DAYS
     Route: 050
     Dates: start: 20240802
  4. TYLENOL [Concomitant]
     Active Substance: ACETAMINOPHEN
     Route: 050
     Dates: start: 20240802

REACTIONS (1)
  - Spinal pain [Unknown]
